FAERS Safety Report 24078092 (Version 1)
Quarter: 2024Q3

REPORT INFORMATION
  Report Type: Report from Study
  Country: EG (occurrence: None)
  Receive Date: 20240711
  Receipt Date: 20240711
  Transmission Date: 20241017
  Serious: Yes (Other)
  Sender: ASTRAZENECA
  Company Number: 2024A154343

PATIENT
  Age: 24911 Day
  Sex: Female

DRUGS (1)
  1. CALQUENCE [Suspect]
     Active Substance: ACALABRUTINIB
     Indication: Chronic lymphocytic leukaemia
     Route: 048
     Dates: start: 20220605

REACTIONS (2)
  - Lip ulceration [Recovered/Resolved]
  - Abscess of eyelid [Recovered/Resolved]

NARRATIVE: CASE EVENT DATE: 20240614
